FAERS Safety Report 14295984 (Version 1)
Quarter: 2017Q4

REPORT INFORMATION
  Report Type: Spontaneous
  Country: JP (occurrence: JP)
  Receive Date: 20171218
  Receipt Date: 20171218
  Transmission Date: 20180321
  Serious: Yes (Death, Other)
  Sender: FDA-Public Use
  Company Number: JP-JNJFOC-20171220298

PATIENT
  Age: 37 Year
  Sex: Female

DRUGS (3)
  1. NEOPERIDOL [Suspect]
     Active Substance: HALOPERIDOL
     Indication: SCHIZOPHRENIA
     Route: 030
  2. XEPLION [Concomitant]
     Active Substance: PALIPERIDONE PALMITATE
     Indication: SCHIZOPHRENIA
     Route: 030
     Dates: start: 20140120, end: 20140120
  3. NEOPERIDOL [Suspect]
     Active Substance: HALOPERIDOL
     Indication: SCHIZOPHRENIA
     Dosage: 50 TO 100 MG
     Route: 030
     Dates: start: 2013, end: 201401

REACTIONS (2)
  - Oculogyric crisis [Unknown]
  - Completed suicide [Fatal]

NARRATIVE: CASE EVENT DATE: 20151208
